FAERS Safety Report 9835274 (Version 2)
Quarter: 2014Q2

REPORT INFORMATION
  Report Type: Spontaneous
  Country: US (occurrence: US)
  Receive Date: 20140122
  Receipt Date: 20140424
  Transmission Date: 20141212
  Serious: No
  Sender: FDA-Public Use
  Company Number: US-BRISTOL-MYERS SQUIBB COMPANY-19914613

PATIENT
  Age: 71 Year
  Sex: Male
  Weight: 116.1 kg

DRUGS (2)
  1. ELIQUIS [Suspect]
     Indication: ATRIAL FIBRILLATION
     Dates: start: 201311
  2. NAPROSYN [Concomitant]
     Indication: BACK DISORDER

REACTIONS (2)
  - Blood glucose increased [Unknown]
  - Hearing impaired [Unknown]
